FAERS Safety Report 17228351 (Version 1)
Quarter: 2020Q1

REPORT INFORMATION
  Report Type: Spontaneous
  Country: FR (occurrence: FR)
  Receive Date: 20200103
  Receipt Date: 20200103
  Transmission Date: 20200409
  Serious: Yes (Hospitalization)
  Sender: FDA-Public Use
  Company Number: FR-TEVA-2019-FR-1160725

PATIENT
  Age: 85 Year
  Sex: Female
  Weight: 79.4 kg

DRUGS (11)
  1. CAPTOPRIL. [Suspect]
     Active Substance: CAPTOPRIL
     Indication: HYPERTENSION
     Dosage: 50 MG PER DAY
     Route: 048
     Dates: end: 20191013
  2. MOVICOL [Concomitant]
     Active Substance: POLYETHYLENE GLYCOL 3350\POTASSIUM CHLORIDE\SODIUM BICARBONATE\SODIUM CHLORIDE
  3. PARACETAMOL [Concomitant]
     Active Substance: ACETAMINOPHEN
  4. OMEPRAZOLE. [Suspect]
     Active Substance: OMEPRAZOLE
     Indication: PRODUCT USED FOR UNKNOWN INDICATION
     Dosage: 20 MG PER DAY
     Route: 048
     Dates: end: 20191013
  5. VOLTARENE [Concomitant]
  6. ATARAX [Suspect]
     Active Substance: HYDROXYZINE HYDROCHLORIDE
     Indication: PRODUCT USED FOR UNKNOWN INDICATION
     Dosage: 1 DOSAGE FORM
     Route: 048
     Dates: end: 20191013
  7. URBANYL 5 MG, GELULE [Suspect]
     Active Substance: CLOBAZAM
     Indication: ANXIETY
     Dosage: 3 DOSAGE FORMS
     Route: 048
     Dates: end: 20191013
  8. EZETROL 10 MG, COMPRIME [Suspect]
     Active Substance: EZETIMIBE
     Indication: DYSLIPIDAEMIA
     Dosage: 1 DOSAGE FORMS
     Route: 048
     Dates: end: 20191013
  9. BIPRETERAX [Suspect]
     Active Substance: INDAPAMIDE\PERINDOPRIL
     Indication: HYPERTENSION
     Dosage: 1 DOSAGE FORMS
     Route: 048
     Dates: end: 20191013
  10. ACIDE ALENDRONIQUE [Concomitant]
     Active Substance: ALENDRONIC ACID
  11. SIMVASTATINE [Concomitant]
     Active Substance: SIMVASTATIN

REACTIONS (1)
  - Fall [Recovered/Resolved]

NARRATIVE: CASE EVENT DATE: 20191006
